FAERS Safety Report 5819076-X (Version None)
Quarter: 2008Q3

REPORT INFORMATION
  Report Type: 
  Country: None (occurrence: None)
  Receive Date: 20080721
  Receipt Date: 20080721
  Transmission Date: 20090109
  Serious: No
  Sender: FDA-Public Use
  Company Number: None

PATIENT
  Age: 50 Year
  Sex: Male
  Weight: 66.6788 kg

DRUGS (1)
  1. CIALIS [Suspect]

REACTIONS (1)
  - CARDIAC DISORDER [None]
